FAERS Safety Report 14123655 (Version 1)
Quarter: 2017Q4

REPORT INFORMATION
  Report Type: Spontaneous
  Country: US (occurrence: US)
  Receive Date: 20171025
  Receipt Date: 20171025
  Transmission Date: 20180321
  Serious: No
  Sender: FDA-Public Use
  Company Number: US-KERYX BIOPHARMACEUTICALS INC.-2017US003120

PATIENT
  Age: 68 Year
  Sex: Female
  Weight: 85.5 kg

DRUGS (16)
  1. ARANESP [Concomitant]
     Active Substance: DARBEPOETIN ALFA
     Dosage: 35 MICRO-G, QWK
     Route: 042
     Dates: start: 20170614, end: 20170711
  2. TYLENOL [Concomitant]
     Active Substance: ACETAMINOPHEN
     Dosage: 1000 MG, PRN
     Route: 048
     Dates: start: 20170221
  3. NOVOLOG [Concomitant]
     Active Substance: INSULIN ASPART
     Dosage: 10 UNIT, WITH EACH MEAL
     Route: 058
     Dates: start: 20170222
  4. TIMOLOL MALEATE. [Concomitant]
     Active Substance: TIMOLOL MALEATE
     Dosage: 1 DROP , BID
     Route: 047
     Dates: start: 20170222
  5. AURYXIA [Suspect]
     Active Substance: TETRAFERRIC TRICITRATE DECAHYDRATE
     Indication: HYPERPHOSPHATAEMIA
     Dosage: 6 G (6 TABLETS), QD
     Route: 048
     Dates: start: 20170425, end: 20170713
  6. CARVEDILOL. [Concomitant]
     Active Substance: CARVEDILOL
     Dosage: 6.25 MG, BID
     Route: 048
     Dates: start: 20170222
  7. HEPARIN [Concomitant]
     Active Substance: HEPARIN SODIUM
     Dosage: 4000 UNIT, EVERY TREATMENT
     Route: 040
     Dates: start: 20170404
  8. AMLODIPINE BESYLATE. [Concomitant]
     Active Substance: AMLODIPINE BESYLATE
     Dosage: 5 MG, QD
     Route: 048
     Dates: start: 20170222
  9. FERRLECIT                          /00023541/ [Concomitant]
     Dosage: 125 MG, EVERY OTHER WEEK
     Route: 042
     Dates: start: 20170411, end: 20170711
  10. AURYXIA [Suspect]
     Active Substance: TETRAFERRIC TRICITRATE DECAHYDRATE
     Dosage: 2 G (2 TABLETS), QD
     Route: 048
     Dates: start: 20170713, end: 20170727
  11. ENALAPRIL [Concomitant]
     Active Substance: ENALAPRIL
     Dosage: 30 MG, QD
     Route: 048
     Dates: start: 20170328
  12. TOUJEO [Concomitant]
     Active Substance: INSULIN GLARGINE
     Dosage: 26 UNIT, QD
     Route: 058
     Dates: start: 20170222
  13. ERGOCALCIFEROL. [Concomitant]
     Active Substance: ERGOCALCIFEROL
     Dosage: 50000 IU, QMO
     Route: 048
     Dates: start: 20170228
  14. HEPARIN SODIUM. [Concomitant]
     Active Substance: HEPARIN SODIUM
     Dosage: 4 ML, 3 TIMES/WK
     Route: 042
     Dates: start: 20170418
  15. HEPARIN [Concomitant]
     Active Substance: HEPARIN SODIUM
     Dosage: 10000 UNIT, RECIRCULATION, EVERY TREATMENT
     Dates: start: 20170221
  16. SODIUM CHLORIDE. [Concomitant]
     Active Substance: SODIUM CHLORIDE
     Dosage: 500 ML, PRN
     Route: 042
     Dates: start: 20170221

REACTIONS (1)
  - Diarrhoea [Recovered/Resolved]

NARRATIVE: CASE EVENT DATE: 201707
